FAERS Safety Report 4322332-8 (Version None)
Quarter: 2004Q1

REPORT INFORMATION
  Report Type: 
  Country: None (occurrence: None)
  Receive Date: 20040319
  Receipt Date: 20040305
  Transmission Date: 20041129
  Serious: Yes (Life-Threatening, Hospitalization)
  Sender: FDA-Public Use
  Company Number: 04P-062-0249456-00

PATIENT
  Age: 45 Year
  Sex: Female
  Weight: 60 kg

DRUGS (10)
  1. HUMIRA [Suspect]
     Indication: RHEUMATOID ARTHRITIS
     Dosage: 40 MG, 1 IN 2 WK, SUBCUTANEOUS
     Route: 058
     Dates: start: 20031204
  2. METHOTREXATE SODIUM [Suspect]
     Indication: RHEUMATOID ARTHRITIS
     Dosage: 20 MG, 1 IN 1 WK, PER ORAL
     Route: 048
     Dates: start: 20020601
  3. PREDNISOLONE [Suspect]
     Indication: RHEUMATOID ARTHRITIS
     Dosage: 20 MG, 1 IN 1 D, PER ORAL
     Route: 048
     Dates: start: 19980101
  4. PREDNISOLONE [Concomitant]
  5. METHOTREXATE [Concomitant]
  6. ESOMEPRAZOLE [Concomitant]
  7. CALCIUM WITH VITAMIN D [Concomitant]
  8. VALORON N [Concomitant]
  9. SULTAMICILLIN TOSILATE [Concomitant]
  10. ZOLPIDEM [Concomitant]

REACTIONS (16)
  - BACTERIA URINE IDENTIFIED [None]
  - COLITIS ULCERATIVE [None]
  - DIZZINESS [None]
  - ENDOMETRIAL DISORDER [None]
  - ESCHERICHIA BACTERAEMIA [None]
  - ESCHERICHIA URINARY TRACT INFECTION [None]
  - GASTRITIS [None]
  - HIATUS HERNIA [None]
  - INFLAMMATION [None]
  - KLEBSIELLA BACTERAEMIA [None]
  - KLEBSIELLA INFECTION [None]
  - NAUSEA [None]
  - OESOPHAGITIS [None]
  - UROSEPSIS [None]
  - UTERINE LEIOMYOMA [None]
  - VOMITING [None]
